FAERS Safety Report 9639252 (Version 2)
Quarter: 2013Q4

REPORT INFORMATION
  Report Type: Spontaneous
  Country: US (occurrence: None)
  Receive Date: 20131010
  Receipt Date: 20131118
  Transmission Date: 20140711
  Serious: Yes (Death)
  Sender: FDA-Public Use
  Company Number: US-145480

PATIENT
  Sex: Female
  Weight: 85.5 kg

DRUGS (3)
  1. WINRHO SDF [Suspect]
     Indication: IMMUNE THROMBOCYTOPENIC PURPURA
     Dates: start: 2013
  2. PRILOSEC [Concomitant]
  3. LISINOPRIL [Concomitant]
     Indication: IMMUNE THROMBOCYTOPENIC PURPURA
     Dosage: 1X/WEEK INTRAVENOUS
     Route: 042
     Dates: start: 20130409, end: 20130423

REACTIONS (2)
  - Haemolysis [None]
  - Haemorrhage [None]
